FAERS Safety Report 6219596-2 (Version None)
Quarter: 2009Q2

REPORT INFORMATION
  Report Type: 
  Country: None (occurrence: None)
  Receive Date: 20090609
  Receipt Date: 20090529
  Transmission Date: 20091009
  Serious: Yes (Life-Threatening, Hospitalization)
  Sender: FDA-Public Use
  Company Number: FR-PFIZER INC-2009220002

PATIENT
  Age: 55 Year

DRUGS (4)
  1. DOXORUBICIN HCL [Suspect]
     Dosage: 96 MG, EVERY 21 DAYS
     Route: 042
     Dates: start: 20090107, end: 20090401
  2. MABTHERA [Suspect]
     Dosage: 720 MG, EVERY 21 DAYS
     Route: 042
     Dates: start: 20090107, end: 20090401
  3. ONCOVIN [Suspect]
     Dosage: 2 MG, EVERY 21 DAYS
     Route: 042
     Dates: start: 20090107, end: 20090401
  4. ENDOXAN [Suspect]
     Dosage: 1440 MG, EVERY 21 DAYS
     Route: 042
     Dates: start: 20090107, end: 20090401

REACTIONS (2)
  - ACUTE RESPIRATORY DISTRESS SYNDROME [None]
  - INTERSTITIAL LUNG DISEASE [None]
